FAERS Safety Report 25498547 (Version 1)
Quarter: 2025Q3

REPORT INFORMATION
  Report Type: Spontaneous
  Country: JP (occurrence: JP)
  Receive Date: 20250701
  Receipt Date: 20250701
  Transmission Date: 20251020
  Serious: Yes (Other)
  Sender: ALCON
  Company Number: JP-ALCON LABORATORIES-ALC2025JP003228

PATIENT
  Age: 57 Year
  Sex: Female

DRUGS (2)
  1. BSS PLUS [Suspect]
     Active Substance: CALCIUM CHLORIDE\DEXTROSE\MAGNESIUM CHLORIDE\OXIGLUTATIONE\POTASSIUM CHLORIDE\SODIUM BICARBONATE\SOD
     Route: 065
  2. BSS PLUS [Suspect]
     Active Substance: CALCIUM CHLORIDE\DEXTROSE\MAGNESIUM CHLORIDE\OXIGLUTATIONE\POTASSIUM CHLORIDE\SODIUM BICARBONATE\SOD
     Indication: Surgery
     Route: 065

REACTIONS (4)
  - Corneal opacity [Recovered/Resolved]
  - Product quality issue [Unknown]
  - Multiple use of single-use product [Unknown]
  - Corneal oedema [Recovered/Resolved]

NARRATIVE: CASE EVENT DATE: 20250609
